FAERS Safety Report 6189900-2 (Version None)
Quarter: 2009Q2

REPORT INFORMATION
  Report Type: 
  Country: None (occurrence: None)
  Receive Date: 20090512
  Receipt Date: 20090512
  Transmission Date: 20091009
  Serious: No
  Sender: FDA-Public Use
  Company Number: None

PATIENT
  Age: 43 Year
  Sex: Female
  Weight: 64.4108 kg

DRUGS (1)
  1. MIRENA [Suspect]
     Indication: CONTRACEPTION
     Dosage: INTRA-UTERINE
     Dates: start: 20090105, end: 20090507

REACTIONS (12)
  - ABDOMINAL DISTENSION [None]
  - ABDOMINAL PAIN [None]
  - ACNE [None]
  - ASTHMA [None]
  - BACK PAIN [None]
  - BRONCHITIS [None]
  - CHEST DISCOMFORT [None]
  - DEPRESSION [None]
  - DRUG DEPENDENCE [None]
  - LIMB DISCOMFORT [None]
  - NAUSEA [None]
  - WEIGHT INCREASED [None]
